FAERS Safety Report 18181232 (Version 2)
Quarter: 2021Q3

REPORT INFORMATION
  Report Type: Report from Study
  Country: CA (occurrence: CA)
  Receive Date: 20200821
  Receipt Date: 20210804
  Transmission Date: 20211014
  Serious: Yes (Hospitalization, Other)
  Sender: FDA-Public Use
  Company Number: CA-ASTRAZENECA-2020SF02055

PATIENT
  Age: 29660 Day
  Sex: Male

DRUGS (13)
  1. CALQUENCE [Suspect]
     Active Substance: ACALABRUTINIB
     Indication: CHRONIC LYMPHOCYTIC LEUKAEMIA
     Route: 048
     Dates: start: 20200717, end: 20200810
  2. CALQUENCE [Suspect]
     Active Substance: ACALABRUTINIB
     Indication: CHRONIC LYMPHOCYTIC LEUKAEMIA
     Route: 048
  3. APIXABAN [Concomitant]
     Active Substance: APIXABAN
     Indication: HEART RATE IRREGULAR
     Route: 065
  4. ASA [Concomitant]
     Active Substance: ASPIRIN
     Dosage: 81.0MG UNKNOWN
     Route: 065
  5. APIXABAN [Concomitant]
     Active Substance: APIXABAN
     Indication: HEART RATE IRREGULAR
     Route: 065
     Dates: start: 20200807
  6. APIXABAN [Concomitant]
     Active Substance: APIXABAN
     Indication: HEART RATE IRREGULAR
     Dosage: FURTHER DECREASED BY HALF IN HOSPITAL OVER LAST 24 HOURS.
     Route: 065
  7. PERINDOPRIL [Concomitant]
     Active Substance: PERINDOPRIL
     Indication: CARDIAC DISORDER
     Route: 065
  8. METFORMIN [Concomitant]
     Active Substance: METFORMIN HYDROCHLORIDE
     Indication: DIABETES MELLITUS
     Route: 065
  9. VITAMIN B12 [Concomitant]
     Active Substance: CYANOCOBALAMIN
     Route: 065
  10. VITAMIN D3 [Concomitant]
     Active Substance: CHOLECALCIFEROL
     Route: 065
  11. PERINDOPRIL [Concomitant]
     Active Substance: PERINDOPRIL
     Indication: RENAL DISORDER
     Route: 065
  12. ATORVASTATIN [Concomitant]
     Active Substance: ATORVASTATIN
     Indication: BLOOD CHOLESTEROL
     Route: 065
  13. TYLENOL [Concomitant]
     Active Substance: ACETAMINOPHEN
     Route: 065

REACTIONS (5)
  - Joint swelling [Recovering/Resolving]
  - Haemarthrosis [Recovering/Resolving]
  - Contusion [Unknown]
  - Arthritis infective [Recovering/Resolving]
  - Limb mass [Unknown]

NARRATIVE: CASE EVENT DATE: 20200810
